FAERS Safety Report 7431775-5 (Version None)
Quarter: 2011Q1

REPORT INFORMATION
  Report Type: 
  Country: None (occurrence: None)
  Receive Date: 20110302
  Receipt Date: 20101207
  Transmission Date: 20110831
  Serious: No
  Sender: FDA-Public Use
  Company Number: 021258

PATIENT
  Sex: Female
  Weight: 47.6 kg

DRUGS (7)
  1. CIMZIA [Suspect]
     Indication: CROHN'S DISEASE
     Dosage: 400 MG 1X/4 WEEKS SUBCUTANEOUS
     Route: 058
     Dates: start: 20100907, end: 20101130
  2. C-VITAMIN [Concomitant]
  3. XIFAXAN [Concomitant]
  4. SODIUM [Concomitant]
  5. CALCIUM [Concomitant]
  6. MAGNESIUM [Concomitant]
  7. POTASSIUM [Concomitant]

REACTIONS (6)
  - SLEEP DISORDER [None]
  - SINUS DISORDER [None]
  - PYREXIA [None]
  - FREQUENT BOWEL MOVEMENTS [None]
  - FISTULA [None]
  - NASOPHARYNGITIS [None]
